FAERS Safety Report 10645296 (Version 1)
Quarter: 2014Q4

REPORT INFORMATION
  Report Type: Spontaneous
  Country: US (occurrence: None)
  Receive Date: 20141209
  Receipt Date: 20141209
  Transmission Date: 20150529
  Serious: Yes (Hospitalization)
  Sender: FDA-Public Use
  Company Number: FK201405808

PATIENT
  Age: 47 Year
  Sex: Female

DRUGS (2)
  1. IFOSFAMIDE (MANUFACTURER UNKNOWN) (IFOSFAMIDE) (IFOSFAMIDE) [Suspect]
     Active Substance: IFOSFAMIDE
     Indication: ADENOCARCINOMA OF THE CERVIX
  2. DOXORUBICIN (MANUFACTURER UNKNOWN) (DOXORUBICIN HYDROCHLORIDE) (DOXORUBICIN HYDROCHLORIDE) [Suspect]
     Active Substance: DOXORUBICIN
     Indication: ADENOCARCINOMA OF THE CERVIX

REACTIONS (1)
  - Colitis [None]
